FAERS Safety Report 13387482 (Version 11)
Quarter: 2025Q1

REPORT INFORMATION
  Report Type: Spontaneous
  Country: US (occurrence: US)
  Receive Date: 20170330
  Receipt Date: 20250331
  Transmission Date: 20250409
  Serious: No
  Sender: PFIZER
  Company Number: US-PFIZER INC-2015010920

PATIENT
  Age: 59 Year
  Sex: Male

DRUGS (4)
  1. CAVERJECT [Suspect]
     Active Substance: ALPROSTADIL
     Indication: Erectile dysfunction
  2. CAVERJECT [Suspect]
     Active Substance: ALPROSTADIL
     Indication: Hypogonadism
  3. CAVERJECT [Suspect]
     Active Substance: ALPROSTADIL
  4. VIAGRA [Concomitant]
     Active Substance: SILDENAFIL CITRATE

REACTIONS (5)
  - Drug ineffective [Not Recovered/Not Resolved]
  - Illness [Unknown]
  - Back disorder [Unknown]
  - Arthropathy [Unknown]
  - Product prescribing error [Unknown]

NARRATIVE: CASE EVENT DATE: 20170301
